FAERS Safety Report 10563092 (Version 1)
Quarter: 2014Q4

REPORT INFORMATION
  Report Type: Spontaneous
  Country: US (occurrence: None)
  Receive Date: 20141103
  Receipt Date: 20141103
  Transmission Date: 20150529
  Serious: Yes (Other)
  Sender: FDA-Public Use
  Company Number: None

PATIENT
  Age: 60 Year
  Sex: Female
  Weight: 68.04 kg

DRUGS (2)
  1. CIPRO [Suspect]
     Active Substance: CIPROFLOXACIN HYDROCHLORIDE
     Indication: BACTERIAL INFECTION
     Dosage: DATES OF USE: BY PRESCRIPTION, 1 PILL, NOWEVER PRESCRIBED
  2. CIPRO [Suspect]
     Active Substance: CIPROFLOXACIN HYDROCHLORIDE
     Indication: VAGINAL INFECTION
     Dosage: DATES OF USE: BY PRESCRIPTION, 1 PILL, NOWEVER PRESCRIBED

REACTIONS (3)
  - Fatigue [None]
  - Kidney infection [None]
  - Renal pain [None]

NARRATIVE: CASE EVENT DATE: 20131120
